FAERS Safety Report 10885745 (Version 1)
Quarter: 2015Q1

REPORT INFORMATION
  Report Type: Spontaneous
  Country: JP (occurrence: JP)
  Receive Date: 20150304
  Receipt Date: 20150304
  Transmission Date: 20150721
  Serious: Yes (Death, Hospitalization)
  Sender: FDA-Public Use
  Company Number: PHHY2015JP022375

PATIENT
  Age: 68 Year
  Sex: Female

DRUGS (2)
  1. METHOTREXATE [Suspect]
     Active Substance: METHOTREXATE
     Indication: RHEUMATOID ARTHRITIS
     Route: 065
  2. PREDNISOLONE. [Concomitant]
     Active Substance: PREDNISOLONE
     Indication: RHEUMATOID ARTHRITIS
     Route: 065

REACTIONS (9)
  - Hepatic neoplasm [Unknown]
  - Hepatic failure [Fatal]
  - Hodgkin^s disease [Unknown]
  - Lymphadenopathy [Unknown]
  - Lymphoproliferative disorder [Unknown]
  - Fatigue [Unknown]
  - Hepatosplenomegaly [Unknown]
  - Disseminated intravascular coagulation [Fatal]
  - Decreased appetite [Unknown]

NARRATIVE: CASE EVENT DATE: 201203
